FAERS Safety Report 4269383-X (Version None)
Quarter: 2004Q1

REPORT INFORMATION
  Report Type: 
  Country: None (occurrence: None)
  Receive Date: 20040113
  Receipt Date: 20040107
  Transmission Date: 20041129
  Serious: Yes (Hospitalization)
  Sender: FDA-Public Use
  Company Number: WAES 0401USA00427

PATIENT

DRUGS (1)
  1. ZETIA [Suspect]
     Route: 048
     Dates: start: 20030101

REACTIONS (1)
  - HEPATIC FAILURE [None]
